FAERS Safety Report 6149006-5 (Version None)
Quarter: 2009Q2

REPORT INFORMATION
  Report Type: 
  Country: None (occurrence: None)
  Receive Date: 20090407
  Receipt Date: 20090326
  Transmission Date: 20091009
  Serious: Yes (Hospitalization)
  Sender: FDA-Public Use
  Company Number: GXKR2009US03934

PATIENT
  Age: 28 Year
  Sex: Female

DRUGS (3)
  1. CO-TRIMOXAZOLE (NGX) (SULFAMETHOXAZOLE, TRIMETHOPRIM) UNKNOWN [Suspect]
  2. SODIUM BICARBONATE IN PLASTIC CONTAINER [Concomitant]
  3. IRON (IRON) [Concomitant]

REACTIONS (6)
  - ASTHENIA [None]
  - CYANOSIS [None]
  - DYSPNOEA [None]
  - FATIGUE [None]
  - OXYGEN SATURATION DECREASED [None]
  - SULPHAEMOGLOBINAEMIA [None]
